FAERS Safety Report 7463886-2 (Version None)
Quarter: 2011Q2

REPORT INFORMATION
  Report Type: 
  Country: None (occurrence: None)
  Receive Date: 20110506
  Receipt Date: 20110426
  Transmission Date: 20111010
  Serious: Yes (Hospitalization)
  Sender: FDA-Public Use
  Company Number: JP-PFIZER INC-2011085074

PATIENT
  Sex: Female

DRUGS (9)
  1. MYSER [Concomitant]
  2. BONALFA [Concomitant]
  3. LOXONIN [Concomitant]
  4. OMEPRAZOLE [Concomitant]
  5. SUNITINIB MALATE [Suspect]
     Indication: RENAL CELL CARCINOMA
     Dosage: 25 MG, UNK
     Route: 048
     Dates: start: 20091016, end: 20110330
  6. THYRADIN S [Concomitant]
  7. EPADEL [Concomitant]
  8. AZUNOL [Concomitant]
  9. INSIDE [Concomitant]

REACTIONS (1)
  - HERPES ZOSTER [None]
